FAERS Safety Report 21475399 (Version 5)
Quarter: 2023Q1

REPORT INFORMATION
  Report Type: Spontaneous
  Country: AU (occurrence: AU)
  Receive Date: 20221019
  Receipt Date: 20230112
  Transmission Date: 20230418
  Serious: Yes (Other)
  Sender: FDA-Public Use
  Company Number: AU-CELLTRION INC.-2022AU016622

PATIENT

DRUGS (5)
  1. INFLECTRA [Suspect]
     Active Substance: INFLIXIMAB-DYYB
     Indication: Crohn^s disease
     Dosage: 10 MG/KG (700 MG, EVERY 4 WEEKS) WK 0,2,6 AND 4 W
     Dates: start: 202108
  2. INFLECTRA [Suspect]
     Active Substance: INFLIXIMAB-DYYB
     Dosage: ESCALATED
     Dates: start: 202201
  3. INFLECTRA [Suspect]
     Active Substance: INFLIXIMAB-DYYB
     Dosage: 10MG/KG WK0,2,6 AND 4 WEEKLY,AS PER PROTOCOL
     Route: 042
  4. METHOTREXATE [Concomitant]
     Active Substance: METHOTREXATE
     Dosage: 20 MG, WEEKLY (WITH THE FOLIC ACID ON FRIDAYS)
     Dates: start: 202105
  5. FOLIC ACID [Concomitant]
     Active Substance: FOLIC ACID
     Dosage: FOLIC ACID ON FRIDAYS

REACTIONS (6)
  - Intestinal obstruction [Unknown]
  - Intestinal stenosis [Unknown]
  - Road traffic accident [Unknown]
  - Loss of therapeutic response [Unknown]
  - Product dose omission issue [Unknown]
  - Off label use [Unknown]

NARRATIVE: CASE EVENT DATE: 20220901
